FAERS Safety Report 4296195-3 (Version None)
Quarter: 2004Q1

REPORT INFORMATION
  Report Type: 
  Country: None (occurrence: None)
  Receive Date: 20040217
  Receipt Date: 20030915
  Transmission Date: 20041129
  Serious: Yes (Other)
  Sender: FDA-Public Use
  Company Number: US-GLAXOSMITHKLINE-A0425935A

PATIENT
  Age: 35 Year
  Sex: Female

DRUGS (4)
  1. LAMICTAL [Suspect]
     Indication: BIPOLAR DISORDER
     Route: 048
  2. WELLBUTRIN [Concomitant]
  3. METHYLPHENIDATE HCL [Concomitant]
  4. PLAQUENIL [Concomitant]

REACTIONS (3)
  - ABDOMINAL PAIN [None]
  - HEPATIC ENZYME INCREASED [None]
  - PYREXIA [None]
